FAERS Safety Report 7736345-7 (Version None)
Quarter: 2011Q3

REPORT INFORMATION
  Report Type: 
  Country: None (occurrence: None)
  Receive Date: 20110908
  Receipt Date: 20110824
  Transmission Date: 20111222
  Serious: Yes (Other)
  Sender: FDA-Public Use
  Company Number: JP-MYLANLABS-2011S1018050

PATIENT
  Age: 29 Year
  Sex: Female

DRUGS (7)
  1. OXALIPLATIN [Suspect]
     Indication: RECTAL CANCER STAGE IV
     Dosage: 100MG/BODY ON DAY 1
     Route: 065
     Dates: start: 20050901, end: 20070301
  2. FLUOROURACIL [Concomitant]
     Indication: RECTAL CANCER STAGE IV
     Route: 065
     Dates: start: 20050501, end: 20050801
  3. LEUCOVORIN CALCIUM [Concomitant]
     Indication: RECTAL CANCER STAGE IV
     Route: 065
     Dates: start: 20050501, end: 20050801
  4. FLUOROURACIL [Concomitant]
     Dosage: 3000 MG/BODY CONTINUOUS ADMINISTRATION ON DAY 1
     Route: 065
     Dates: start: 20050901, end: 20070301
  5. FLUOROURACIL [Concomitant]
     Dosage: 625 MG/BODY RAPID IV INJECTION ON DAY 1
     Route: 042
     Dates: start: 20050901, end: 20070301
  6. IRINOTECAN HCL [Suspect]
     Indication: RECTAL CANCER STAGE IV
     Route: 065
     Dates: start: 20050501, end: 20050801
  7. LEUCOVORIN CALCIUM [Concomitant]
     Dosage: 300 MG/BODY ON DAY 1
     Route: 065
     Dates: start: 20050901, end: 20070301

REACTIONS (2)
  - INTERSTITIAL LUNG DISEASE [None]
  - NEUROPATHY PERIPHERAL [None]
